FAERS Safety Report 24117185 (Version 2)
Quarter: 2024Q4

REPORT INFORMATION
  Report Type: Spontaneous
  Country: JP (occurrence: JP)
  Receive Date: 20240722
  Receipt Date: 20241212
  Transmission Date: 20250115
  Serious: Yes (Other)
  Sender: TAKEDA
  Company Number: JP-TAKEDA-2024TJP010829

PATIENT
  Age: 5 Decade
  Sex: Female

DRUGS (2)
  1. VONVENDI [Suspect]
     Active Substance: VON WILLEBRAND FACTOR (RECOMBINANT)
     Indication: Von Willebrand^s disease
     Dosage: 3 DOSAGE FORM, 2/WEEK
     Dates: start: 20240524
  2. VONVENDI [Suspect]
     Active Substance: VON WILLEBRAND FACTOR (RECOMBINANT)
     Dosage: 3 DOSAGE FORM, 3/WEEK
     Dates: start: 202409

REACTIONS (2)
  - Lower gastrointestinal haemorrhage [Unknown]
  - Drug ineffective [Unknown]
